FAERS Safety Report 4694076-4 (Version None)
Quarter: 2005Q2

REPORT INFORMATION
  Report Type: 
  Country: None (occurrence: None)
  Receive Date: 20050616
  Receipt Date: 20050608
  Transmission Date: 20051028
  Serious: Yes (Hospitalization)
  Sender: FDA-Public Use
  Company Number: 2005053796

PATIENT
  Age: 57 Year
  Sex: Female
  Weight: 70.3075 kg

DRUGS (7)
  1. LIPITOR [Suspect]
     Indication: BLOOD CHOLESTEROL INCREASED
     Dosage: (40 MG, 1 IN 1 D), ORAL
     Route: 048
  2. NEURONTIN [Concomitant]
  3. PREVACID [Concomitant]
  4. DILTIAZEM [Concomitant]
  5. FOLIC ACID [Concomitant]
  6. NITRO PATCH (GLYCERYL TRINITRATE) [Concomitant]
  7. PLAVIX [Concomitant]

REACTIONS (7)
  - ARTERIOSPASM CORONARY [None]
  - BLOOD ALKALINE PHOSPHATASE INCREASED [None]
  - CHEST PAIN [None]
  - CONVULSION [None]
  - CORONARY ARTERY DISEASE [None]
  - CORONARY ARTERY OCCLUSION [None]
  - STRESS [None]
